FAERS Safety Report 5097735-7 (Version None)
Quarter: 2006Q3

REPORT INFORMATION
  Report Type: 
  Country: None (occurrence: None)
  Receive Date: 20060901
  Receipt Date: 20060821
  Transmission Date: 20061208
  Serious: Yes (Other)
  Sender: FDA-Public Use
  Company Number: USA-2006-0024403

PATIENT
  Age: 20 Year
  Sex: Male
  Weight: 77.6 kg

DRUGS (3)
  1. OXYCONTIN [Suspect]
     Indication: DRUG USE FOR UNKNOWN INDICATION
  2. PERCOCET [Suspect]
     Indication: DRUG USE FOR UNKNOWN INDICATION
  3. MARIJUANA(CANNABIS) [Suspect]
     Indication: DRUG USE FOR UNKNOWN INDICATION

REACTIONS (8)
  - ACCIDENTAL DEATH [None]
  - ANOREXIA [None]
  - DRUG DEPENDENCE [None]
  - DRUG TOXICITY [None]
  - LOSS OF CONSCIOUSNESS [None]
  - NEGLECT OF PERSONAL APPEARANCE [None]
  - SOCIAL AVOIDANT BEHAVIOUR [None]
  - SUBSTANCE ABUSE [None]
